FAERS Safety Report 17265679 (Version 1)
Quarter: 2020Q1

REPORT INFORMATION
  Report Type: Spontaneous
  Country: US (occurrence: US)
  Receive Date: 20200114
  Receipt Date: 20200114
  Transmission Date: 20200409
  Serious: Yes (Other)
  Sender: FDA-Public Use
  Company Number: US-TEVA-2020-US-1166578

PATIENT
  Age: 62 Year
  Sex: Male

DRUGS (1)
  1. PREDNISONE. [Suspect]
     Active Substance: PREDNISONE
     Indication: SARCOIDOSIS
     Dosage: 30 MILLIGRAM DAILY;
     Route: 065

REACTIONS (3)
  - Spinal compression fracture [Unknown]
  - Thoracic vertebral fracture [Unknown]
  - Osteoporosis [Unknown]
